FAERS Safety Report 8298098-6 (Version None)
Quarter: 2012Q2

REPORT INFORMATION
  Report Type: 
  Country: None (occurrence: None)
  Receive Date: 20120419
  Receipt Date: 20120410
  Transmission Date: 20120825
  Serious: Yes (Other)
  Sender: FDA-Public Use
  Company Number: CA-ROCHE-1050655

PATIENT
  Sex: Female
  Weight: 70 kg

DRUGS (5)
  1. BOCEPREVIR [Suspect]
     Indication: HEPATITIS C
     Route: 048
  2. EPREX [Concomitant]
     Indication: ANAEMIA
     Dosage: 40000/U
     Route: 058
     Dates: start: 20120314
  3. COPEGUS [Suspect]
     Indication: HEPATITIS C
     Route: 048
     Dates: start: 20111214
  4. VALIUM [Concomitant]
  5. PEGINTERFERON ALFA-2A [Suspect]
     Indication: HEPATITIS C
     Route: 058
     Dates: start: 20111214

REACTIONS (9)
  - BLINDNESS [None]
  - HYPERHIDROSIS [None]
  - VOMITING [None]
  - MIGRAINE [None]
  - DEAFNESS UNILATERAL [None]
  - DEPRESSION [None]
  - DIARRHOEA [None]
  - ANGER [None]
  - NAUSEA [None]
